FAERS Safety Report 8907086 (Version 2)
Quarter: 2012Q4

REPORT INFORMATION
  Report Type: 
  Country: US (occurrence: US)
  Receive Date: 20121114
  Receipt Date: 20121207
  Transmission Date: 20130627
  Serious: Yes (Other)
  Sender: FDA-Public Use
  Company Number: US-VERTEX PHARMACEUTICAL INC.-AE-2012-010289

PATIENT
  Age: 52 None
  Sex: Female

DRUGS (6)
  1. VX-950 (TELAPREVIR) [Suspect]
     Indication: HEPATITIS C
     Dosage: UNK
     Route: 048
     Dates: start: 20120411, end: 20120703
  2. RIBAVIRIN [Concomitant]
     Indication: HEPATITIS C
     Dosage: UNK
     Dates: start: 20120411
  3. RIBAVIRIN [Concomitant]
     Dosage: 400 mg, UNK
  4. RIBAVIRIN [Concomitant]
     Dosage: UNK
  5. RIBAVIRIN [Concomitant]
     Dosage: 200 mg, qd
  6. PEGASYS [Concomitant]
     Indication: HEPATITIS C
     Dosage: UNK
     Dates: start: 20120411

REACTIONS (13)
  - Dehydration [Not Recovered/Not Resolved]
  - Anaemia [Not Recovered/Not Resolved]
  - White blood cell count decreased [Not Recovered/Not Resolved]
  - Irritability [Not Recovered/Not Resolved]
  - Emotional disorder [Not Recovered/Not Resolved]
  - Anger [Unknown]
  - Headache [Not Recovered/Not Resolved]
  - Myalgia [Not Recovered/Not Resolved]
  - Alopecia [Not Recovered/Not Resolved]
  - Fatigue [Not Recovered/Not Resolved]
  - Platelet count decreased [Not Recovered/Not Resolved]
  - Dysgeusia [Not Recovered/Not Resolved]
  - Nausea [Not Recovered/Not Resolved]
